FAERS Safety Report 4294651-5 (Version None)
Quarter: 2004Q1

REPORT INFORMATION
  Report Type: 
  Country: None (occurrence: None)
  Receive Date: 20040213
  Receipt Date: 20031030
  Transmission Date: 20041129
  Serious: Yes (Other)
  Sender: FDA-Public Use
  Company Number: US-GLAXOSMITHKLINE-A0432259A

PATIENT
  Age: 68 Year
  Sex: Male
  Weight: 93.6 kg

DRUGS (8)
  1. AVANDIA [Suspect]
     Indication: DIABETES MELLITUS NON-INSULIN-DEPENDENT
     Dosage: 4MG PER DAY
     Route: 048
     Dates: end: 20040120
  2. PREVACID [Concomitant]
  3. GLYBURIDE [Concomitant]
     Dosage: 10MG TWICE PER DAY
  4. LOPID [Concomitant]
     Dosage: 6MG TWICE PER DAY
  5. AMITRIPTYLINE [Concomitant]
     Dosage: 25MG PER DAY
  6. NEXIUM [Concomitant]
     Dosage: 40MG PER DAY
  7. VIOXX [Concomitant]
     Dosage: 25MG PER DAY
  8. GLUCOPHAGE [Concomitant]

REACTIONS (2)
  - BLOOD TRIGLYCERIDES INCREASED [None]
  - HEPATIC ENZYME INCREASED [None]
